FAERS Safety Report 20865049 (Version 2)
Quarter: 2022Q2

REPORT INFORMATION
  Report Type: Spontaneous
  Country: US (occurrence: US)
  Receive Date: 20220524
  Receipt Date: 20220606
  Transmission Date: 20220721
  Serious: No
  Sender: FDA-Public Use
  Company Number: US-LUPIN PHARMACEUTICALS INC.-2022-07209

PATIENT
  Sex: Female
  Weight: 59 kg

DRUGS (1)
  1. CEFDINIR [Suspect]
     Active Substance: CEFDINIR
     Indication: Fungal infection
     Dosage: UNK, QD (4 MONTHS AGO)
     Route: 065

REACTIONS (4)
  - Headache [Unknown]
  - Dizziness [Unknown]
  - Poor quality product administered [Unknown]
  - Product storage error [Unknown]
